FAERS Safety Report 6640911-X (Version None)
Quarter: 2010Q1

REPORT INFORMATION
  Report Type: 
  Country: None (occurrence: None)
  Receive Date: 20100318
  Receipt Date: 20100125
  Transmission Date: 20100710
  Serious: Yes (Other)
  Sender: FDA-Public Use
  Company Number: US-PURDUE-USA-2010-0041989

PATIENT
  Sex: Male

DRUGS (2)
  1. OXYCONTIN [Suspect]
     Indication: BACK PAIN
     Dosage: UNK
     Dates: start: 19990302, end: 20031101
  2. OXYCONTIN [Suspect]
     Indication: ANALGESIC THERAPY

REACTIONS (10)
  - ANXIETY [None]
  - CHILLS [None]
  - HYPERHIDROSIS [None]
  - INSOMNIA [None]
  - MUSCLE SPASMS [None]
  - NAUSEA [None]
  - OVERDOSE [None]
  - PAIN [None]
  - RENAL FAILURE [None]
  - RESTLESS LEGS SYNDROME [None]
